FAERS Safety Report 14933013 (Version 1)
Quarter: 2018Q2

REPORT INFORMATION
  Report Type: Spontaneous
  Country: US (occurrence: US)
  Receive Date: 20180524
  Receipt Date: 20180524
  Transmission Date: 20180711
  Serious: No
  Sender: FDA-Public Use
  Company Number: US-PFIZER INC-2018211245

PATIENT
  Age: 57 Year
  Sex: Female
  Weight: 104.33 kg

DRUGS (3)
  1. LYRICA [Concomitant]
     Active Substance: PREGABALIN
     Dosage: UNK
     Dates: end: 20180101
  2. LYRICA [Concomitant]
     Active Substance: PREGABALIN
     Dosage: UNK
     Dates: end: 201804
  3. GABAPENTIN. [Suspect]
     Active Substance: GABAPENTIN
     Dosage: TAKING 3 OF THESE A DAY

REACTIONS (1)
  - Drug ineffective [Unknown]
